FAERS Safety Report 4540214-3 (Version None)
Quarter: 2004Q4

REPORT INFORMATION
  Report Type: 
  Country: None (occurrence: None)
  Receive Date: 20041222
  Receipt Date: 20041206
  Transmission Date: 20050328
  Serious: Yes (Other)
  Sender: FDA-Public Use
  Company Number: GBS041216129

PATIENT
  Age: 48 Year
  Sex: Female

DRUGS (2)
  1. CEPHALEXIN MONOHYDRATE [Suspect]
     Indication: SALPINGITIS
     Dosage: 500 MG/3 DAY
     Dates: start: 20040903, end: 20040915
  2. METRONIDAZOLE [Concomitant]

REACTIONS (2)
  - ARTHROPATHY [None]
  - RASH MACULAR [None]
